FAERS Safety Report 4668385-9 (Version None)
Quarter: 2005Q2

REPORT INFORMATION
  Report Type: 
  Country: None (occurrence: None)
  Receive Date: 20050523
  Receipt Date: 20050114
  Transmission Date: 20051028
  Serious: Yes (Other)
  Sender: FDA-Public Use
  Company Number: PHNU2005DE00562

PATIENT
  Age: 51 Year
  Sex: Female
  Weight: 59 kg

DRUGS (11)
  1. ZOMETA [Suspect]
     Indication: OSTEOLYSIS
     Dosage: 4 MG, QMO
     Route: 042
     Dates: start: 20021105
  2. AREDIA [Suspect]
     Indication: OSTEOLYSIS
     Dosage: 60 MG, QMO
     Route: 042
     Dates: start: 20010101, end: 20020901
  3. BLOPRESS [Concomitant]
     Indication: HYPERTENSION
     Dosage: 8 MG, QD
     Route: 048
  4. IDARUBICIN HCL [Concomitant]
     Indication: PLASMACYTOMA
     Route: 065
     Dates: start: 20010101, end: 20010401
  5. DEXAMETHASONE [Concomitant]
     Indication: PLASMACYTOMA
     Route: 065
     Dates: start: 20010101, end: 20010401
  6. EPIRUBICIN [Concomitant]
     Indication: PLASMACYTOMA
     Route: 065
     Dates: start: 20010501
  7. ETOPOSIDE [Concomitant]
     Indication: PLASMACYTOMA
     Route: 065
     Dates: start: 20010501
  8. IFOSFAMIDE [Concomitant]
     Indication: PLASMACYTOMA
     Route: 065
     Dates: start: 20010501
  9. BUSULFAN [Concomitant]
     Indication: PLASMACYTOMA
     Route: 065
     Dates: start: 20010601, end: 20010701
  10. CYCLOPHOSPHAMIDE [Concomitant]
     Indication: PLASMACYTOMA
     Route: 065
     Dates: start: 20010601, end: 20010701
  11. RADIATION [Concomitant]
     Route: 065
     Dates: start: 20010701

REACTIONS (8)
  - BONE DISORDER [None]
  - DENTAL TREATMENT [None]
  - GINGIVAL SWELLING [None]
  - OSTEOLYSIS [None]
  - OSTEONECROSIS [None]
  - PAIN IN JAW [None]
  - TOOTH EXTRACTION [None]
  - X-RAY ABNORMAL [None]
